FAERS Safety Report 12633011 (Version 2)
Quarter: 2016Q3

REPORT INFORMATION
  Report Type: Spontaneous
  Country: US (occurrence: US)
  Receive Date: 20160808
  Receipt Date: 20160808
  Transmission Date: 20161109
  Serious: No
  Sender: FDA-Public Use
  Company Number: US-BEH-2016058085

PATIENT
  Sex: Female
  Weight: 73 kg

DRUGS (24)
  1. IPRATROPIUM- ALBUTEROL [Concomitant]
  2. DIAZEPAM. [Concomitant]
     Active Substance: DIAZEPAM
  3. ADAVAIR [Concomitant]
     Dosage: DISKUS 500-50 MCG BLST W/DEV/ALBUTEROL SULFATE
  4. BENZONATATE. [Concomitant]
     Active Substance: BENZONATATE
  5. RIZATRIPTAN. [Concomitant]
     Active Substance: RIZATRIPTAN
  6. CLOBETASOL PRIOPIONATE [Concomitant]
  7. VALACYCLOVIR [Concomitant]
     Active Substance: VALACYCLOVIR HYDROCHLORIDE
  8. RABEPRAZOLE SODIUM. [Concomitant]
     Active Substance: RABEPRAZOLE SODIUM
     Dosage: DR
  9. VALTREX [Concomitant]
     Active Substance: VALACYCLOVIR HYDROCHLORIDE
  10. ZYRTEC [Concomitant]
     Active Substance: CETIRIZINE HYDROCHLORIDE
  11. VENTOLIN HFA [Concomitant]
     Active Substance: ALBUTEROL SULFATE
     Dosage: HFA AER AD
  12. MIRENA [Concomitant]
     Active Substance: LEVONORGESTREL
     Dosage: 20 MCG/24 HR IUD
  13. DESONIDE. [Concomitant]
     Active Substance: DESONIDE
     Dosage: LOTION
  14. ACIPHEX [Concomitant]
     Active Substance: RABEPRAZOLE SODIUM
     Dosage: DR
  15. FUROSEMIDE. [Concomitant]
     Active Substance: FUROSEMIDE
  16. ACETAMINOPHEN. [Concomitant]
     Active Substance: ACETAMINOPHEN
  17. SPIRIVA [Concomitant]
     Active Substance: TIOTROPIUM BROMIDE MONOHYDRATE
     Dosage: W/DEV
  18. KETOCONAZOLE. [Concomitant]
     Active Substance: KETOCONAZOLE
  19. ACARBOSE. [Concomitant]
     Active Substance: ACARBOSE
  20. QVAR [Concomitant]
     Active Substance: BECLOMETHASONE DIPROPIONATE
     Dosage: AER W/ADAB
  21. ONDANSETRON ODT [Concomitant]
     Active Substance: ONDANSETRON
     Dosage: 4 MG TAB RAPDIS
  22. HIZENTRA [Suspect]
     Active Substance: HUMAN IMMUNOGLOBULIN G
     Indication: HYPOGAMMAGLOBULINAEMIA
     Route: 058
     Dates: start: 20151002
  23. VITAMIN C [Concomitant]
     Active Substance: ASCORBIC ACID
  24. VITAMIN D3 [Concomitant]
     Active Substance: CHOLECALCIFEROL

REACTIONS (1)
  - Ear infection [Unknown]
